FAERS Safety Report 4852178-3 (Version None)
Quarter: 2005Q4

REPORT INFORMATION
  Report Type: 
  Country: None (occurrence: None)
  Receive Date: 20051213
  Receipt Date: 20050927
  Transmission Date: 20060501
  Serious: Yes (Other)
  Sender: FDA-Public Use
  Company Number: US-GLAXOSMITHKLINE-A0576720A

PATIENT
  Age: 72 Year
  Sex: Male

DRUGS (2)
  1. MALARONE [Suspect]
     Indication: PROPHYLAXIS
  2. NO CONCURRENT MEDICATION [Concomitant]

REACTIONS (2)
  - MOUTH ULCERATION [None]
  - PARALYSIS [None]
